FAERS Safety Report 13345286 (Version 1)
Quarter: 2017Q1

REPORT INFORMATION
  Report Type: Report from Study
  Country: US (occurrence: US)
  Receive Date: 20170317
  Receipt Date: 20170317
  Transmission Date: 20170428
  Serious: Yes (Other)
  Sender: FDA-Public Use
  Company Number: US-AMGEN-USASL2017037998

PATIENT
  Age: 70 Year
  Sex: Female

DRUGS (1)
  1. ENBREL [Suspect]
     Active Substance: ETANERCEPT
     Indication: RHEUMATOID ARTHRITIS
     Dosage: 25 MG, 2 TIMES/WK (72 TO 96 HOURS APART AS DIRECTED)
     Route: 058

REACTIONS (4)
  - Arthralgia [Unknown]
  - Arthropathy [Unknown]
  - Pain in extremity [Unknown]
  - Rotator cuff repair [Unknown]

NARRATIVE: CASE EVENT DATE: 20160726
